FAERS Safety Report 21587301 (Version 1)
Quarter: 2022Q4

REPORT INFORMATION
  Report Type: Report from Study
  Country: US (occurrence: US)
  Receive Date: 20221114
  Receipt Date: 20221114
  Transmission Date: 20230113
  Serious: No
  Sender: FDA-Public Use
  Company Number: US-ACADIA PHARMACEUTICALS INC.-ACA-2022-PIM-003643

PATIENT
  Age: 80 Year
  Sex: Male

DRUGS (13)
  1. NUPLAZID [Suspect]
     Active Substance: PIMAVANSERIN TARTRATE
     Indication: Parkinson^s disease
     Dosage: 34 MILLIGRAM, QD
     Route: 048
     Dates: start: 202210
  2. APOKYN [Concomitant]
     Active Substance: APOMORPHINE HYDROCHLORIDE
  3. ELIQUIS [Concomitant]
     Active Substance: APIXABAN
  4. MEMANTINE [Concomitant]
     Active Substance: MEMANTINE
  5. AMLODIPINE [Concomitant]
     Active Substance: AMLODIPINE BESYLATE
  6. MIRALAX [Concomitant]
     Active Substance: POLYETHYLENE GLYCOL 3350
  7. MELATONIN [Concomitant]
     Active Substance: MELATONIN
  8. PAROXETINE [Concomitant]
     Active Substance: PAROXETINE
  9. CLONAZEPAM [Concomitant]
     Active Substance: CLONAZEPAM
  10. METOPROLOL [Concomitant]
     Active Substance: METOPROLOL
  11. CARBIDOPA [Concomitant]
     Active Substance: CARBIDOPA
  12. OMEPRAZOLE [Concomitant]
     Active Substance: OMEPRAZOLE
  13. DONEPEZIL [Concomitant]
     Active Substance: DONEPEZIL

REACTIONS (6)
  - Abnormal behaviour [Unknown]
  - Blood pressure decreased [Unknown]
  - Lethargy [Unknown]
  - Dyskinesia [Unknown]
  - Hallucination [Unknown]
  - Somnolence [Unknown]

NARRATIVE: CASE EVENT DATE: 20221020
